FAERS Safety Report 22110851 (Version 1)
Quarter: 2023Q1

REPORT INFORMATION
  Report Type: Spontaneous
  Country: US (occurrence: US)
  Receive Date: 20230317
  Receipt Date: 20230317
  Transmission Date: 20230417
  Serious: Yes (Other)
  Sender: FDA-Public Use
  Company Number: US-BAYER-2023A034074

PATIENT
  Age: 24 Year
  Sex: Female

DRUGS (1)
  1. ASPIRIN [Suspect]
     Active Substance: ASPIRIN

REACTIONS (3)
  - Foetal growth restriction [None]
  - Premature delivery [None]
  - Exposure during pregnancy [None]
